FAERS Safety Report 6174040-9 (Version None)
Quarter: 2009Q2

REPORT INFORMATION
  Report Type: 
  Country: None (occurrence: None)
  Receive Date: 20090430
  Receipt Date: 20080227
  Transmission Date: 20091009
  Serious: No
  Sender: FDA-Public Use
  Company Number: US-ASTRAZENECA-2008UW04102

PATIENT
  Sex: Male
  Weight: 68 kg

DRUGS (3)
  1. NEXIUM [Suspect]
     Route: 048
     Dates: start: 20050101
  2. PROZAC [Concomitant]
  3. BACTRIM [Concomitant]

REACTIONS (2)
  - SKIN DISCOLOURATION [None]
  - TINNITUS [None]
